FAERS Safety Report 8894890 (Version 2)
Quarter: 2013Q3

REPORT INFORMATION
  Report Type: Spontaneous
  Country: US (occurrence: US)
  Receive Date: 20121107
  Receipt Date: 20130930
  Transmission Date: 20140515
  Serious: No
  Sender: FDA-Public Use
  Company Number: US-AMGEN-USASP2011049571

PATIENT
  Age: 58 Year
  Sex: Female
  Weight: 90.25 kg

DRUGS (15)
  1. ENBREL [Suspect]
     Indication: RHEUMATOID ARTHRITIS
     Dosage: 50 MG, QWK
     Route: 058
  2. AMBIEN [Concomitant]
     Dosage: 5 MG, UNK
  3. PREMPRO [Concomitant]
     Dosage: 0.45-1.5
  4. VERAMYST [Concomitant]
     Dosage: 27.5 MUG, UNK
  5. NEXIUM                             /01479302/ [Concomitant]
     Dosage: 20 MG, UNK
  6. METHOTREXATE [Concomitant]
     Dosage: 250\10 ML
  7. FISH OIL [Concomitant]
     Dosage: UNK
  8. ROBAXIN [Concomitant]
     Dosage: 100 MG, UNK
  9. ALEVE [Concomitant]
     Dosage: 220 MG, UNK
  10. MULTIVITAMINS, PLAIN [Concomitant]
     Dosage: UNK
  11. CALCIUM D                          /00944201/ [Concomitant]
     Dosage: UNK
  12. L-ARGININE                         /00126101/ [Concomitant]
     Dosage: 1000 MG, UNK
  13. GLUCOSAMINE AND CHONDROITIN [Concomitant]
  14. FOLIC ACID [Concomitant]
     Dosage: 20 MG, UNK
  15. B COMPLEX                          /00212701/ [Concomitant]
     Dosage: UNK

REACTIONS (4)
  - Therapeutic response decreased [Unknown]
  - Injection site pain [Recovered/Resolved]
  - Injection site erythema [Recovered/Resolved]
  - Injection site urticaria [Recovered/Resolved]
